FAERS Safety Report 9477853 (Version 1)
Quarter: 2013Q3

REPORT INFORMATION
  Report Type: Spontaneous
  Country: US (occurrence: None)
  Receive Date: 20130826
  Receipt Date: 20130826
  Transmission Date: 20140515
  Serious: Yes (Life-Threatening, Hospitalization)
  Sender: FDA-Public Use
  Company Number: None

PATIENT
  Sex: Female
  Weight: 61.24 kg

DRUGS (1)
  1. PHENYTEK [Suspect]
     Indication: CONVULSION
     Dosage: 1 CAP PO BID
     Route: 048

REACTIONS (3)
  - Drug ineffective [None]
  - Convulsion [None]
  - Product substitution issue [None]
